FAERS Safety Report 16530305 (Version 1)
Quarter: 2019Q3

REPORT INFORMATION
  Report Type: Spontaneous
  Country: SE (occurrence: SE)
  Receive Date: 20190704
  Receipt Date: 20190704
  Transmission Date: 20191004
  Serious: Yes (Hospitalization)
  Sender: FDA-Public Use
  Company Number: SE-SUN PHARMACEUTICAL INDUSTRIES LTD-2019RR-212481

PATIENT
  Age: 16 Year
  Sex: Female

DRUGS (4)
  1. SERTRALINE [Suspect]
     Active Substance: SERTRALINE HYDROCHLORIDE
     Indication: PRODUCT USED FOR UNKNOWN INDICATION
     Dosage: 5 GRAM UNK
     Route: 048
     Dates: start: 20190321, end: 20190321
  2. LAMICTAL [Suspect]
     Active Substance: LAMOTRIGINE
     Indication: PRODUCT USED FOR UNKNOWN INDICATION
     Dosage: UNK
     Route: 048
     Dates: start: 20190321, end: 20190321
  3. LERGIGAN (PROMETHAZINE HYDROCHLORIDE) [Suspect]
     Active Substance: PROMETHAZINE HYDROCHLORIDE
     Indication: PRODUCT USED FOR UNKNOWN INDICATION
     Dosage: 2.5 GRAM UNK
     Route: 048
     Dates: start: 20190321, end: 20190321
  4. THERALEN [Suspect]
     Active Substance: TRIMEPRAZINE
     Indication: PRODUCT USED FOR UNKNOWN INDICATION
     Dosage: 500 MILLIGRAM UNK
     Route: 048
     Dates: start: 20190321, end: 20190321

REACTIONS (10)
  - Coma scale abnormal [Unknown]
  - Tachycardia [Unknown]
  - Akathisia [Recovered/Resolved]
  - Dizziness [Unknown]
  - Suicide attempt [Unknown]
  - Electrocardiogram ST segment depression [Unknown]
  - Somnolence [Unknown]
  - Intentional overdose [Unknown]
  - Toxicity to various agents [Unknown]
  - Tremor [Unknown]

NARRATIVE: CASE EVENT DATE: 20190321
